FAERS Safety Report 20512602 (Version 2)
Quarter: 2022Q1

REPORT INFORMATION
  Report Type: Spontaneous
  Country: US (occurrence: None)
  Receive Date: 20220224
  Receipt Date: 20220316
  Transmission Date: 20220423
  Serious: No
  Sender: FDA-Public Use
  Company Number: 2022A061701

PATIENT
  Age: 27314 Day
  Sex: Male

DRUGS (1)
  1. SYMBICORT [Suspect]
     Active Substance: BUDESONIDE\FORMOTEROL FUMARATE DIHYDRATE
     Indication: COVID-19 pneumonia
     Dosage: 80 MCG/4.5 MCG 2 PUFF BID
     Route: 055
     Dates: start: 20220125

REACTIONS (4)
  - Dyspnoea [Unknown]
  - Off label use [Unknown]
  - Incorrect dose administered by device [Unknown]
  - Device delivery system issue [Unknown]

NARRATIVE: CASE EVENT DATE: 20220125
